FAERS Safety Report 21956457 (Version 1)
Quarter: 2023Q1

REPORT INFORMATION
  Report Type: Spontaneous
  Country: CH (occurrence: None)
  Receive Date: 20230206
  Receipt Date: 20230206
  Transmission Date: 20230417
  Serious: Yes (Hospitalization, Other)
  Sender: FDA-Public Use
  Company Number: 2023A030188

PATIENT
  Age: 76 Year
  Sex: Female

DRUGS (2)
  1. LYNPARZA [Suspect]
     Active Substance: OLAPARIB
     Indication: Ovarian cancer metastatic
     Dosage: UNK
     Route: 048
     Dates: start: 20210419
  2. ARIMIDEX [Concomitant]
     Active Substance: ANASTROZOLE
     Indication: Invasive lobular breast carcinoma
     Dosage: UNK
     Dates: start: 201610

REACTIONS (11)
  - Malignant neoplasm progression [Unknown]
  - Recurrent cancer [Unknown]
  - Procedural intestinal perforation [Unknown]
  - Peritonitis [Unknown]
  - Abdominal abscess [Unknown]
  - Thrombocytopenia [Unknown]
  - Neutropenia [Unknown]
  - Urinary tract obstruction [Unknown]
  - Nasopharyngitis [Unknown]
  - COVID-19 [Unknown]
  - Drug resistance [Unknown]

NARRATIVE: CASE EVENT DATE: 20220701
